FAERS Safety Report 8573353-0 (Version None)
Quarter: 2012Q2

REPORT INFORMATION
  Report Type: 
  Country: None (occurrence: None)
  Receive Date: 20120423
  Receipt Date: 20110309
  Transmission Date: 20120825
  Serious: No
  Sender: FDA-Public Use
  Company Number: FK201100404

PATIENT

DRUGS (1)
  1. HEPARIN SODIUM [Suspect]
     Indication: PRODUCT USED FOR UNKNOWN INDICATION
     Dosage: 15,000 UNITS

REACTIONS (2)
  - HYPERSENSITIVITY [None]
  - DRUG EFFECT DECREASED [None]
